FAERS Safety Report 5390866-3 (Version None)
Quarter: 2007Q3

REPORT INFORMATION
  Report Type: 
  Country: None (occurrence: None)
  Receive Date: 20070716
  Receipt Date: 20070702
  Transmission Date: 20080115
  Serious: Yes (Death, Other)
  Sender: FDA-Public Use
  Company Number: GXKR2007IT05687

PATIENT
  Age: 76 Year
  Sex: Female

DRUGS (5)
  1. OXALIPLATIN [Suspect]
     Indication: RECTAL CANCER
     Dosage: 100 MG/M2, ON DAY 1, REPEATED EVERY 14 DAYS,
     Dates: start: 20050201
  2. FOLINIC ACID (NGX)(FOLINIC ACID) UNKNOWN [Suspect]
     Indication: RECTAL CANCER
     Dosage: 250 MG/M2, ON DAY 2, REPEATED EVERY 14 DAYS,
     Dates: start: 20050201
  3. FLUOROURACIL [Suspect]
     Indication: RECTAL CANCER
     Dosage: 800 MG/M2, ON DAY 2, REPEATED EVERY 14 DAYS,
     Dates: start: 20050201
  4. RALTITREXED(RALTITREXED) [Suspect]
     Indication: RECTAL CANCER
     Dosage: 2.5 MG/M2, ON DAY 1, REPEATED EVERY 14 DAYS,
     Dates: start: 20050201
  5. NON-DRUG: RADIO- THERAPY (NO INGREDIENTS/SUBSTANCES) [Concomitant]

REACTIONS (9)
  - ATRIAL FIBRILLATION [None]
  - CARCINOEMBRYONIC ANTIGEN INCREASED [None]
  - DISEASE PROGRESSION [None]
  - METASTASES TO LUNG [None]
  - METASTASES TO SALIVARY GLAND [None]
  - METASTASES TO SKIN [None]
  - MUCOSAL INFLAMMATION [None]
  - RECTAL CANCER METASTATIC [None]
  - TREATMENT NONCOMPLIANCE [None]
